FAERS Safety Report 12126800 (Version 1)
Quarter: 2016Q1

REPORT INFORMATION
  Report Type: Spontaneous
  Country: GB (occurrence: GB)
  Receive Date: 20160229
  Receipt Date: 20160229
  Transmission Date: 20160526
  Serious: Yes (Other)
  Sender: FDA-Public Use
  Company Number: GB-JNJFOC-20160215790

PATIENT
  Age: 62 Year
  Sex: Female

DRUGS (19)
  1. PEPPERMINT OIL [Concomitant]
     Active Substance: PEPPERMINT OIL
     Indication: ABDOMINAL DISTENSION
     Dosage: 10 DOSES (UNITS UNSPECIFIED) AS REQUIRED
     Route: 065
  2. MACROGOL [Concomitant]
     Active Substance: POLYETHYLENE GLYCOLS
     Indication: CONSTIPATION
     Dosage: 1 DOSE (UNIT UNSPECIFIED)/ 1 SACHET WHEN REQUIRED TWICE A DAY. 1 DOSE AS REQUIRED.
     Route: 065
  3. CYCLIZINE [Concomitant]
     Active Substance: CYCLIZINE
     Indication: PRODUCT USED FOR UNKNOWN INDICATION
     Dosage: 50 DOSES (UNITS UNSPECIFIED). AT 8 AM, 2 OPM, AND 10 PM 50 MG/ 1ML
     Route: 065
  4. THIAMINE. [Concomitant]
     Active Substance: THIAMINE
     Indication: PRODUCT USED FOR UNKNOWN INDICATION
     Dosage: 100 DOSES (UNITS UNSPECIFIED) 8 AM TO 6 PM
     Route: 065
  5. LANSOPRAZOLE. [Suspect]
     Active Substance: LANSOPRAZOLE
     Indication: PRODUCT USED FOR UNKNOWN INDICATION
     Dosage: CONTINUED ON ORAL LANSOPRAZOLE 30 MG CAPSULES TWICE DAILY
     Route: 048
  6. DIAZEPAM. [Suspect]
     Active Substance: DIAZEPAM
     Indication: ANXIETY
     Dosage: 2 DOSES (UNITS UNSPECIFIED), AS REQUIRED
     Route: 065
  7. MIRABEGRON [Concomitant]
     Active Substance: MIRABEGRON
     Indication: PRODUCT USED FOR UNKNOWN INDICATION
     Dosage: 50 DOSES (UNITS UNSPECIFIED) EVERY MORNING
     Route: 065
  8. HYOSCINE BUTYLBROMIDE [Concomitant]
     Active Substance: BUTYLSCOPOLAMINE
     Indication: PRODUCT USED FOR UNKNOWN INDICATION
     Dosage: 20 DOSE (UNITS UNSPECIFIED) 8 AM, 2 PM AND 10 PM 20 MG/ ML
     Route: 065
  9. BIOTENE DRY MOUTH [Concomitant]
     Indication: DRY MOUTH
     Dosage: 1 DOSE (UNITS UNSPECIFIED) APPLY TO THE GUMS AND TONGUE WHEN REQUIRED TWICE A DAY
     Route: 065
  10. COCODAMOL [Suspect]
     Active Substance: ACETAMINOPHEN\CODEINE PHOSPHATE
     Indication: PAIN
     Dosage: 2 DOSES (UNSPECIFIED UNIT) 4 TIMES A DAY
     Route: 065
  11. GABAPENTIN. [Concomitant]
     Active Substance: GABAPENTIN
     Indication: PRODUCT USED FOR UNKNOWN INDICATION
     Dosage: 600 DOSE (UNITS UNSPECIFIED) AT 8 AM, 12 PM AND 10 PM
     Route: 065
  12. DULOXETINE. [Suspect]
     Active Substance: DULOXETINE
     Indication: PRODUCT USED FOR UNKNOWN INDICATION
     Dosage: 60 DOSES (UNITS UNSPECIFIED) EVERY MORNING
     Route: 065
  13. FLUTICASONE PROPIONATE. [Concomitant]
     Active Substance: FLUTICASONE PROPIONATE
     Indication: PRODUCT USED FOR UNKNOWN INDICATION
     Dosage: 50 DOSES (UNITS UNSPECIFIED) 8 AM TO 10 PM TO BOTH NOSTRILS
     Route: 045
  14. GAVISCON ADVANCE [Concomitant]
     Active Substance: POTASSIUM BICARBONATE\SODIUM ALGINATE
     Indication: PRODUCT USED FOR UNKNOWN INDICATION
     Dosage: 10 DOSES (UNITS UNSPECIFIED)
     Route: 065
  15. RANITIDINE [Concomitant]
     Active Substance: RANITIDINE\RANITIDINE HYDROCHLORIDE
     Indication: PRODUCT USED FOR UNKNOWN INDICATION
     Dosage: 150 DOSES (UNITS UNSPECIFIED) EVERY NIGHT
     Route: 065
  16. FLUCLOXACILLIN [Concomitant]
     Active Substance: FLUCLOXACILLIN
     Indication: LOWER RESPIRATORY TRACT INFECTION
     Dosage: 500 DOSES (UNITS UNSPECIFIED)
     Route: 048
     Dates: end: 20151021
  17. VITAMIN B COMPOUND STRONG [Concomitant]
     Indication: PRODUCT USED FOR UNKNOWN INDICATION
     Dosage: 1 DOSE (UNITS UNSPECIFIED) AT 8 AM AND 6 PM
     Route: 065
  18. TEMAZEPAM. [Concomitant]
     Active Substance: TEMAZEPAM
     Indication: PRODUCT USED FOR UNKNOWN INDICATION
     Dosage: 10 DOSES (UNITS UNSPECIFIED) EVERY NIGHT 10 MG/5ML
     Route: 048
  19. GLYCERYL TRINITRATE [Concomitant]
     Active Substance: NITROGLYCERIN
     Indication: ANGINA PECTORIS
     Dosage: 400 MICROGRAMS/ DOSE 1- 2 SPRAYS WHEN REQUIRED.
     Route: 065

REACTIONS (1)
  - Dysgeusia [Recovered/Resolved with Sequelae]
